FAERS Safety Report 7885493-X (Version None)
Quarter: 2011Q4

REPORT INFORMATION
  Report Type: 
  Country: None (occurrence: None)
  Receive Date: 20111102
  Receipt Date: 20111021
  Transmission Date: 20120403
  Serious: Yes (Hospitalization, Other)
  Sender: FDA-Public Use
  Company Number: US-BAYER-2011-037862

PATIENT
  Age: 24 Year
  Sex: Female
  Weight: 93 kg

DRUGS (2)
  1. YAZ [Suspect]
     Indication: PRODUCT USED FOR UNKNOWN INDICATION
     Dosage: UNK
     Dates: start: 20090101, end: 20090501
  2. SYNTHROID [Concomitant]

REACTIONS (10)
  - CHOLECYSTITIS CHRONIC [None]
  - ORGAN FAILURE [None]
  - CHOLELITHIASIS [None]
  - NEPHROLITHIASIS [None]
  - ANXIETY [None]
  - ANHEDONIA [None]
  - INJURY [None]
  - CHOLECYSTITIS ACUTE [None]
  - GALLBLADDER DISORDER [None]
  - PAIN [None]
